FAERS Safety Report 16356726 (Version 1)
Quarter: 2019Q2

REPORT INFORMATION
  Report Type: Spontaneous
  Country: AU (occurrence: AU)
  Receive Date: 20190527
  Receipt Date: 20190527
  Transmission Date: 20190711
  Serious: Yes (Hospitalization)
  Sender: FDA-Public Use
  Company Number: AU-ROCHE-2323657

PATIENT
  Age: 77 Year
  Sex: Male
  Weight: 81.7 kg

DRUGS (6)
  1. ROSUVASTATIN. [Concomitant]
     Active Substance: ROSUVASTATIN
  2. ACTILYSE [Suspect]
     Active Substance: ALTEPLASE
     Dosage: GIVEN OVER 60 MIN
     Route: 041
  3. ACTILYSE [Suspect]
     Active Substance: ALTEPLASE
     Indication: ISCHAEMIC STROKE
     Dosage: GIVEN OVER 1 MINUTE
     Route: 040
  4. SPIRONOLACTONE. [Concomitant]
     Active Substance: SPIRONOLACTONE
  5. PERINDOPRIL [Concomitant]
     Active Substance: PERINDOPRIL
  6. NEBIVOLOL. [Concomitant]
     Active Substance: NEBIVOLOL

REACTIONS (1)
  - Acute myocardial infarction [Unknown]
